FAERS Safety Report 17148631 (Version 1)
Quarter: 2019Q4

REPORT INFORMATION
  Report Type: Report from Study
  Country: None (occurrence: US)
  Receive Date: 20191213
  Receipt Date: 20191213
  Transmission Date: 20200122
  Serious: Yes (Other)
  Sender: FDA-Public Use
  Company Number: US-ABBVIE-19K-163-3187605-00

PATIENT
  Age: 34 Year
  Sex: Female

DRUGS (1)
  1. LUPRON DEPOT [Suspect]
     Active Substance: LEUPROLIDE ACETATE
     Indication: INFERTILITY
     Route: 065

REACTIONS (4)
  - Migraine [Unknown]
  - Colectomy [Unknown]
  - Diarrhoea [Unknown]
  - Colectomy [Unknown]

NARRATIVE: CASE EVENT DATE: 2019
